FAERS Safety Report 16243847 (Version 1)
Quarter: 2019Q2

REPORT INFORMATION
  Report Type: Spontaneous
  Country: FR (occurrence: FR)
  Receive Date: 20190426
  Receipt Date: 20190426
  Transmission Date: 20190711
  Serious: Yes (Life-Threatening)
  Sender: FDA-Public Use
  Company Number: IND-FR-009507513-1904FRA006893

PATIENT
  Age: 58 Year
  Sex: Female

DRUGS (5)
  1. ESMERON [Suspect]
     Active Substance: ROCURONIUM BROMIDE
     Indication: ANAESTHESIA
     Route: 042
     Dates: start: 20180208, end: 20180208
  2. KETALAR [Concomitant]
     Active Substance: KETAMINE HYDROCHLORIDE
     Dates: start: 20180208, end: 20180208
  3. SUFENTANIL [Concomitant]
     Active Substance: SUFENTANIL
     Dates: start: 20180208, end: 20180208
  4. MIDAZOLAM [Concomitant]
     Active Substance: MIDAZOLAM HYDROCHLORIDE
     Dates: start: 20180208, end: 20180208
  5. PROPOFOL. [Concomitant]
     Active Substance: PROPOFOL
     Dates: start: 20180208, end: 20180208

REACTIONS (2)
  - Rash [Recovered/Resolved]
  - Cardio-respiratory arrest [Recovered/Resolved]

NARRATIVE: CASE EVENT DATE: 20180208
